FAERS Safety Report 7895812-6 (Version None)
Quarter: 2011Q4

REPORT INFORMATION
  Report Type: 
  Country: None (occurrence: None)
  Receive Date: 20111106
  Receipt Date: 20110831
  Transmission Date: 20120403
  Serious: No
  Sender: FDA-Public Use
  Company Number: US-AMGEN-USASP2011044799

PATIENT
  Age: 49 Year
  Sex: Female
  Weight: 72.562 kg

DRUGS (4)
  1. ADVIL COLD AND SINUS [Concomitant]
     Dosage: UNK
  2. KLONOPIN [Concomitant]
     Dosage: 1 MG, UNK
  3. ENBREL [Suspect]
     Indication: RHEUMATOID ARTHRITIS
     Dosage: UNK
  4. CELEXA [Concomitant]
     Dosage: 10 MG, UNK

REACTIONS (1)
  - PARAESTHESIA [None]
